FAERS Safety Report 7108402-X (Version None)
Quarter: 2010Q4

REPORT INFORMATION
  Report Type: 
  Country: None (occurrence: None)
  Receive Date: 20101117
  Receipt Date: 20101115
  Transmission Date: 20110411
  Serious: Yes (Other)
  Sender: FDA-Public Use
  Company Number: A0881491A

PATIENT
  Age: 48 Year
  Sex: Female

DRUGS (7)
  1. FLOVENT [Suspect]
     Indication: ASTHMA
     Dosage: 2PUFF TWICE PER DAY
     Route: 055
     Dates: start: 20100101
  2. FLORATIL [Concomitant]
  3. FEXOFENADINE [Concomitant]
  4. SINGULAIR [Concomitant]
  5. GABAPENTIN [Concomitant]
  6. UNSPECIFIED MEDICATION [Concomitant]
  7. NEXIUM [Concomitant]

REACTIONS (4)
  - ASTHMA [None]
  - DRUG ADMINISTRATION ERROR [None]
  - DYSPNOEA [None]
  - PRODUCT QUALITY ISSUE [None]
